FAERS Safety Report 21353786 (Version 1)
Quarter: 2022Q3

REPORT INFORMATION
  Report Type: Spontaneous
  Country: JP (occurrence: JP)
  Receive Date: 20220920
  Receipt Date: 20220920
  Transmission Date: 20221027
  Serious: Yes (Other)
  Sender: FDA-Public Use
  Company Number: JP-SUN PHARMACEUTICAL INDUSTRIES LTD-2022RR-354723

PATIENT
  Age: 68 Year
  Sex: Male

DRUGS (13)
  1. ROSUVASTATIN [Suspect]
     Active Substance: ROSUVASTATIN
     Indication: Product used for unknown indication
     Dosage: UNK
     Route: 065
  2. BISOPROLOL FUMARATE [Concomitant]
     Active Substance: BISOPROLOL FUMARATE
     Indication: Product used for unknown indication
     Dosage: UNK
     Route: 065
  3. NIVOLUMAB [Concomitant]
     Active Substance: NIVOLUMAB
     Indication: Papillary renal cell carcinoma
     Dosage: UNK, 7 COURSES
     Route: 065
  4. IPILIMUMAB [Concomitant]
     Active Substance: IPILIMUMAB
     Indication: Papillary renal cell carcinoma
     Dosage: UNK
     Route: 065
  5. TENELIGLIPTIN [Concomitant]
     Active Substance: TENELIGLIPTIN
     Indication: Papillary renal cell carcinoma
     Dosage: UNK, 7 COURSES
     Route: 048
  6. PREDNISOLONE [Concomitant]
     Active Substance: PREDNISOLONE
     Indication: Papillary renal cell carcinoma
     Dosage: 15 MILLIGRAM, DAILY
     Route: 065
  7. PREDNISOLONE [Concomitant]
     Active Substance: PREDNISOLONE
     Dosage: 50 MILLIGRAM, DAILY
     Route: 065
  8. ASPIRIN [Concomitant]
     Active Substance: ASPIRIN
     Indication: Product used for unknown indication
     Dosage: UNK
     Route: 065
  9. ESOMEPRAZOLE MAGNESIUM [Concomitant]
     Active Substance: ESOMEPRAZOLE MAGNESIUM
     Indication: Product used for unknown indication
     Dosage: UNK
     Route: 065
  10. ENALAPRIL MALEATE [Concomitant]
     Active Substance: ENALAPRIL MALEATE
     Indication: Product used for unknown indication
     Dosage: UNK
     Route: 065
  11. ANAGLIPTIN [Concomitant]
     Active Substance: ANAGLIPTIN
     Indication: Product used for unknown indication
     Dosage: UNK
     Route: 065
  12. METFORMIN HYDROCHLORIDE [Concomitant]
     Active Substance: METFORMIN HYDROCHLORIDE
     Indication: Product used for unknown indication
     Dosage: UNK
     Route: 065
  13. MITIGLINIDE CALCIUM ANHYDROUS [Concomitant]
     Active Substance: MITIGLINIDE CALCIUM ANHYDROUS
     Indication: Product used for unknown indication
     Dosage: UNK
     Route: 065

REACTIONS (2)
  - Autoimmune dermatitis [Unknown]
  - Drug eruption [Unknown]
